FAERS Safety Report 20977632 (Version 2)
Quarter: 2022Q4

REPORT INFORMATION
  Report Type: Spontaneous
  Country: US (occurrence: US)
  Receive Date: 20220618
  Receipt Date: 20221111
  Transmission Date: 20230112
  Serious: No
  Sender: FDA-Public Use
  Company Number: US-BRISTOL-MYERS SQUIBB COMPANY-2022-056173

PATIENT
  Age: 54 Year
  Sex: Female

DRUGS (2)
  1. OPDIVO [Suspect]
     Active Substance: NIVOLUMAB
     Indication: Malignant melanoma
     Dosage: DOSE : OPDIVO 300MG,  YERVOY 100MG;     FREQ : EVERY 3 WEEKS? OPDIVO 6 100MG  VIALS, YERVOY 4, 50MG
     Route: 042
     Dates: start: 202203
  2. YERVOY [Suspect]
     Active Substance: IPILIMUMAB
     Indication: Malignant melanoma
     Dosage: DOSE : OPDIVO 300MG,  YERVOY 100MG;     FREQ : EVERY 3 WEEKS? OPDIVO 6 100MG  VIALS, YERVOY 4, 50MG
     Route: 042
     Dates: start: 202203

REACTIONS (2)
  - Blood pressure abnormal [Unknown]
  - Intentional product use issue [Unknown]

NARRATIVE: CASE EVENT DATE: 20220101
